FAERS Safety Report 9978385 (Version 1)
Quarter: 2014Q1

REPORT INFORMATION
  Report Type: Report from Study
  Country: US (occurrence: US)
  Receive Date: 20140306
  Receipt Date: 20140306
  Transmission Date: 20141002
  Serious: No
  Sender: FDA-Public Use
  Company Number: US-ABBVIE-13P-163-1173136-00

PATIENT
  Sex: Male

DRUGS (34)
  1. HUMIRA [Suspect]
     Indication: RHEUMATOID ARTHRITIS
     Dates: end: 201309
  2. LEXAPRO [Concomitant]
     Indication: CARDIAC DISORDER
  3. LEXAPRO [Concomitant]
     Indication: PROPHYLAXIS
  4. BISOPROLOL FUMARATE [Concomitant]
     Indication: CARDIAC DISORDER
  5. BISOPROLOL FUMARATE [Concomitant]
     Indication: PROPHYLAXIS
  6. FISH OIL [Concomitant]
     Indication: CARDIAC DISORDER
  7. FISH OIL [Concomitant]
     Indication: PROPHYLAXIS
  8. PLAVIX [Concomitant]
     Indication: CARDIAC DISORDER
  9. PLAVIX [Concomitant]
     Indication: PROPHYLAXIS
  10. ASA [Concomitant]
     Indication: CARDIAC DISORDER
  11. ASA [Concomitant]
     Indication: PROPHYLAXIS
  12. NIASPAN [Concomitant]
     Indication: CARDIAC DISORDER
  13. NIASPAN [Concomitant]
     Indication: PROPHYLAXIS
  14. LIPITOR [Concomitant]
     Indication: CARDIAC DISORDER
  15. LIPITOR [Concomitant]
     Indication: PROPHYLAXIS
  16. DAILY VITAMINS [Concomitant]
     Indication: PRODUCT USED FOR UNKNOWN INDICATION
  17. GLUCOTROL [Concomitant]
     Indication: DIABETES MELLITUS
  18. VITAMIN C [Concomitant]
     Indication: PRODUCT USED FOR UNKNOWN INDICATION
  19. VITAMIN D [Concomitant]
     Indication: PRODUCT USED FOR UNKNOWN INDICATION
  20. GARLIC [Concomitant]
     Indication: PRODUCT USED FOR UNKNOWN INDICATION
  21. GABAPENTIN [Concomitant]
     Indication: BACK PAIN
  22. VICODIN [Concomitant]
     Indication: PAIN
  23. CALCIUM [Concomitant]
     Indication: PRODUCT USED FOR UNKNOWN INDICATION
  24. SINGULAIR [Concomitant]
     Indication: HYPERSENSITIVITY
  25. ARAVA [Concomitant]
     Indication: RHEUMATOID ARTHRITIS
  26. NEXIUM [Concomitant]
     Indication: PRODUCT USED FOR UNKNOWN INDICATION
  27. SANCTURA [Concomitant]
     Indication: BLADDER DISORDER
  28. SANCTURA [Concomitant]
     Indication: PROSTATOMEGALY
  29. UROXATRAL [Concomitant]
     Indication: PROSTATOMEGALY
  30. UROXATRAL [Concomitant]
     Indication: BLADDER DISORDER
  31. LAXATIVE [Concomitant]
     Indication: PRODUCT USED FOR UNKNOWN INDICATION
  32. AMBIEN [Concomitant]
     Indication: INSOMNIA
  33. PREDNISONE [Concomitant]
     Indication: RHEUMATOID ARTHRITIS
     Dates: start: 20131111
  34. PREDNISONE [Concomitant]
     Dosage: TAPERING DOSE

REACTIONS (3)
  - Nerve injury [Not Recovered/Not Resolved]
  - Musculoskeletal stiffness [Unknown]
  - Arthralgia [Unknown]
